FAERS Safety Report 19524910 (Version 1)
Quarter: 2021Q3

REPORT INFORMATION
  Report Type: Spontaneous
  Country: US (occurrence: US)
  Receive Date: 20210712
  Receipt Date: 20210712
  Transmission Date: 20211014
  Serious: Yes (Disabling)
  Sender: FDA-Public Use
  Company Number: None

PATIENT
  Age: 25 Year
  Sex: Male
  Weight: 81 kg

DRUGS (3)
  1. MAGNESIUM [Concomitant]
     Active Substance: MAGNESIUM
  2. CLARITIN [Concomitant]
     Active Substance: LORATADINE
  3. FLUTICASONE PROPIONATE NASAL SPRAY [Suspect]
     Active Substance: FLUTICASONE PROPIONATE
     Indication: NASAL CONGESTION
     Dates: start: 20200114, end: 20200218

REACTIONS (11)
  - Nausea [None]
  - Migraine [None]
  - Anxiety [None]
  - Violence-related symptom [None]
  - Mental disorder [None]
  - Pain [None]
  - Magnesium deficiency [None]
  - Insomnia [None]
  - Depersonalisation/derealisation disorder [None]
  - Eustachian tube dysfunction [None]
  - Tremor [None]

NARRATIVE: CASE EVENT DATE: 20200114
